FAERS Safety Report 23500763 (Version 2)
Quarter: 2024Q1

REPORT INFORMATION
  Report Type: Spontaneous
  Country: TW (occurrence: TW)
  Receive Date: 20240208
  Receipt Date: 20240308
  Transmission Date: 20240410
  Serious: Yes (Death, Life-Threatening, Hospitalization, Other)
  Sender: FDA-Public Use
  Company Number: TW-Orion Corporation ORION PHARMA-TREX2024-0020

PATIENT
  Sex: Male
  Weight: 65.8 kg

DRUGS (1)
  1. METHOTREXATE SODIUM [Suspect]
     Active Substance: METHOTREXATE SODIUM
     Indication: Psoriasis
     Dosage: THREE TIMES A WEEK (TIW)
     Route: 048
     Dates: start: 20240108, end: 20240126

REACTIONS (11)
  - Septic shock [Fatal]
  - Pneumonia [Fatal]
  - Pancytopenia [Unknown]
  - Toxic epidermal necrolysis [Unknown]
  - Sepsis [Unknown]
  - Drug level increased [Unknown]
  - Myelosuppression [Unknown]
  - Off label use [Unknown]
  - Inappropriate schedule of product administration [Unknown]
  - Alanine aminotransferase increased [Unknown]
  - Aspartate aminotransferase increased [Unknown]

NARRATIVE: CASE EVENT DATE: 20240108
